FAERS Safety Report 9630179 (Version 1)
Quarter: 2013Q4

REPORT INFORMATION
  Report Type: Report from Study
  Country: NL (occurrence: NL)
  Receive Date: 20131017
  Receipt Date: 20131017
  Transmission Date: 20140711
  Serious: Yes (Hospitalization)
  Sender: FDA-Public Use
  Company Number: PHHY2013NL116931

PATIENT
  Age: 55 Year
  Sex: Female

DRUGS (2)
  1. ZOMETA [Suspect]
     Indication: BREAST CANCER METASTATIC
     Dosage: 4 MG/ 100 ML, ONCE EVERY 4 WEEKS
     Route: 042
  2. ZOMETA [Suspect]
     Dosage: 4 MG/ 100 ML, ONCE EVERY 4 WEEKS
     Route: 042
     Dates: start: 20130917

REACTIONS (3)
  - Cerebral infarction [Not Recovered/Not Resolved]
  - Limb deformity [Not Recovered/Not Resolved]
  - Amnesia [Not Recovered/Not Resolved]
